FAERS Safety Report 8085247-8 (Version None)
Quarter: 2012Q1

REPORT INFORMATION
  Report Type: 
  Country: None (occurrence: None)
  Receive Date: 20120128
  Receipt Date: 20110321
  Transmission Date: 20120608
  Serious: Yes (Hospitalization)
  Sender: FDA-Public Use
  Company Number: US-ABBOTT-11P-163-0713282-00

PATIENT
  Age: 76 Year
  Sex: Female
  Weight: 108.96 kg

DRUGS (3)
  1. PLAQUENIL [Concomitant]
     Indication: PRODUCT USED FOR UNKNOWN INDICATION
  2. LOSARTAN POTASSIUM [Concomitant]
     Indication: HYPERTENSION
  3. HUMIRA [Suspect]
     Indication: RHEUMATOID ARTHRITIS
     Dates: start: 20100501, end: 20101216

REACTIONS (5)
  - ABDOMINAL PAIN UPPER [None]
  - LOCALISED INFECTION [None]
  - ABASIA [None]
  - DIVERTICULITIS [None]
  - HYPERKERATOSIS [None]
